FAERS Safety Report 25833970 (Version 1)
Quarter: 2025Q3

REPORT INFORMATION
  Report Type: Spontaneous
  Country: TR (occurrence: TR)
  Receive Date: 20250923
  Receipt Date: 20250923
  Transmission Date: 20251021
  Serious: Yes (Hospitalization)
  Sender: JOHNSON AND JOHNSON
  Company Number: TR-JNJFOC-20250919142

PATIENT
  Age: 55 Year
  Sex: Male

DRUGS (5)
  1. SPRAVATO [Suspect]
     Active Substance: ESKETAMINE
     Indication: Depression
     Route: 045
  2. FLUOXETINE [Concomitant]
     Active Substance: FLUOXETINE HYDROCHLORIDE
     Indication: Depression
  3. LAMOTRIGINE [Concomitant]
     Active Substance: LAMOTRIGINE
     Indication: Depression
  4. VENLAFAXINE [Concomitant]
     Active Substance: VENLAFAXINE HYDROCHLORIDE
     Indication: Depression
  5. OLANZAPINE [Concomitant]
     Active Substance: OLANZAPINE
     Indication: Depression

REACTIONS (7)
  - Suicidal ideation [Unknown]
  - Anxiety [Unknown]
  - Delusional perception [Unknown]
  - Agitation [Unknown]
  - Nausea [Recovered/Resolved]
  - Dissociation [Recovered/Resolved]
  - Blood pressure increased [Recovered/Resolved]
